FAERS Safety Report 22253384 (Version 2)
Quarter: 2023Q2

REPORT INFORMATION
  Report Type: Spontaneous
  Country: JP (occurrence: JP)
  Receive Date: 20230426
  Receipt Date: 20230523
  Transmission Date: 20230721
  Serious: Yes (Other)
  Sender: FDA-Public Use
  Company Number: JP-ONO-2023JP009962

PATIENT
  Age: 7 Decade
  Sex: Male

DRUGS (4)
  1. OPDIVO [Suspect]
     Active Substance: NIVOLUMAB
     Indication: Non-small cell lung cancer recurrent
     Route: 041
  2. OPDIVO [Suspect]
     Active Substance: NIVOLUMAB
     Route: 041
  3. IPILIMUMAB [Suspect]
     Active Substance: IPILIMUMAB
     Indication: Non-small cell lung cancer recurrent
     Route: 041
  4. IPILIMUMAB [Suspect]
     Active Substance: IPILIMUMAB
     Route: 041

REACTIONS (4)
  - Central nervous system necrosis [Recovering/Resolving]
  - Immune-mediated thyroiditis [Unknown]
  - Immune-mediated dermatitis [Unknown]
  - Alopecia [Recovering/Resolving]
